FAERS Safety Report 19427096 (Version 1)
Quarter: 2021Q2

REPORT INFORMATION
  Report Type: Spontaneous
  Country: DE (occurrence: DE)
  Receive Date: 20210617
  Receipt Date: 20210617
  Transmission Date: 20210717
  Serious: Yes (Death, Hospitalization, Other)
  Sender: FDA-Public Use
  Company Number: DE-LUPIN PHARMACEUTICALS INC.-2021-09544

PATIENT
  Age: 59 Year
  Sex: Female

DRUGS (20)
  1. BUDESONIDE. [Suspect]
     Active Substance: BUDESONIDE
     Indication: IMMUNOSUPPRESSANT DRUG THERAPY
     Dosage: 1 MILLILITER, QD, 250 MG/ML (D48)
  2. BUDESONIDE. [Suspect]
     Active Substance: BUDESONIDE
     Dosage: 1 MILLILITER, BID, 250 MG/ML (D61)
  3. BUDESONIDE. [Suspect]
     Active Substance: BUDESONIDE
     Dosage: 1 MILLILITER, QD, 250 MG/ML (D71)
  4. PREDNISOLONE. [Suspect]
     Active Substance: PREDNISOLONE
     Dosage: 500 MILLIGRAM, QD, D85
     Route: 042
  5. PREDNISOLONE. [Suspect]
     Active Substance: PREDNISOLONE
     Dosage: 200 MILLIGRAM, QD, D90?D93
     Route: 042
  6. TACROLIMUS. [Suspect]
     Active Substance: TACROLIMUS
     Dosage: 1 MILLIGRAM, QD (5NG/ML, DAY 76)
     Route: 048
  7. OBINUTUZUMAB. [Concomitant]
     Active Substance: OBINUTUZUMAB
     Indication: FOLLICULAR LYMPHOMA STAGE III
     Dosage: 1000 MILLIGRAM, D1, D8, D15 OF C1; D1 OF C2?6
     Route: 065
  8. PREDNISOLONE. [Suspect]
     Active Substance: PREDNISOLONE
     Dosage: 100 MILLIGRAM, QD, D82
     Route: 042
  9. TACROLIMUS. [Suspect]
     Active Substance: TACROLIMUS
     Dosage: 1 MILLIGRAM, BID, TAPERED DOWN ON DAY 61
     Route: 048
  10. PREDNISOLONE. [Suspect]
     Active Substance: PREDNISOLONE
     Indication: IMMUNOSUPPRESSANT DRUG THERAPY
     Dosage: 500 MILLIGRAM, QD, ON DAY 41
     Route: 042
  11. PREDNISOLONE. [Suspect]
     Active Substance: PREDNISOLONE
     Dosage: 20 MILLIGRAM, QD, TAPERED DOWN (DAY 47?48)
     Route: 042
  12. PREDNISOLONE. [Suspect]
     Active Substance: PREDNISOLONE
     Dosage: 80 MILLIGRAM, QD, D51?D58
     Route: 042
  13. PREDNISOLONE. [Suspect]
     Active Substance: PREDNISOLONE
     Dosage: 500 MILLIGRAM, BID, FROM DAY 42?46
     Route: 042
  14. TACROLIMUS. [Suspect]
     Active Substance: TACROLIMUS
     Indication: IMMUNOSUPPRESSANT DRUG THERAPY
     Dosage: 2 MILLIGRAM, BID, (5 NG/ML) D56
     Route: 048
  15. POLATUZUMAB VEDOTIN. [Concomitant]
     Active Substance: POLATUZUMAB VEDOTIN
     Indication: FOLLICULAR LYMPHOMA STAGE III
     Dosage: 1.8 MILLIGRAM/KILOGRAM, D1 OF CYCLE 1?6
     Route: 065
  16. BUDESONIDE. [Suspect]
     Active Substance: BUDESONIDE
     Dosage: 1 MILLILITER, BID, 250 MG/ML (D86)
  17. PREDNISOLONE. [Suspect]
     Active Substance: PREDNISOLONE
     Dosage: 60 MILLIGRAM, QD, D76
     Route: 042
  18. ATEZOLIZUMAB. [Concomitant]
     Active Substance: ATEZOLIZUMAB
     Indication: FOLLICULAR LYMPHOMA STAGE III
     Dosage: 1200 MILLIGRAM, D1 OF C2?6
     Route: 065
  19. TOCILIZUMAB. [Suspect]
     Active Substance: TOCILIZUMAB
     Indication: IMMUNOSUPPRESSANT DRUG THERAPY
     Dosage: 3000 MILLIGRAM, ON DAY 44 AND DAY 85
     Route: 042
  20. PREDNISOLONE. [Suspect]
     Active Substance: PREDNISOLONE
     Dosage: 500 MILLIGRAM, QD, ON DAY 50
     Route: 042

REACTIONS (4)
  - Transaminases increased [Unknown]
  - Bronchopulmonary aspergillosis [Fatal]
  - Cytomegalovirus infection [Unknown]
  - Pulmonary embolism [Unknown]
